FAERS Safety Report 7571673-X (Version None)
Quarter: 2011Q2

REPORT INFORMATION
  Report Type: 
  Country: None (occurrence: None)
  Receive Date: 20110624
  Receipt Date: 20110622
  Transmission Date: 20111010
  Serious: Yes (Hospitalization, Disabling)
  Sender: FDA-Public Use
  Company Number: CA-MERCK-0912CAN00111

PATIENT
  Age: 67 Year
  Sex: Female
  Weight: 68 kg

DRUGS (19)
  1. VITAMIN D (UNSPECIFIED) [Concomitant]
     Route: 065
     Dates: start: 20061101, end: 20070101
  2. ESOMEPRAZOLE MAGNESIUM [Concomitant]
     Indication: DYSPEPSIA
     Route: 065
  3. VITAMIN D (UNSPECIFIED) [Concomitant]
     Route: 065
     Dates: start: 20080101
  4. DIAZEPAM [Concomitant]
     Route: 065
  5. FOSAMAX [Suspect]
     Route: 048
     Dates: start: 20001220, end: 20061030
  6. TIOTROPIUM BROMIDE [Concomitant]
     Indication: ASTHMA
     Route: 065
  7. ACETAMINOPHEN AND CODEINE PHOSPHATE [Concomitant]
     Route: 065
  8. IRON SUCROSE [Concomitant]
     Route: 065
  9. CALCIUM (UNSPECIFIED) [Concomitant]
     Route: 065
     Dates: start: 20010101
  10. LANSOPRAZOLE [Concomitant]
     Route: 065
     Dates: start: 20061001
  11. FOSAMAX [Suspect]
     Route: 048
     Dates: start: 20000502, end: 20001220
  12. ESOMEPRAZOLE MAGNESIUM [Concomitant]
     Indication: GASTROOESOPHAGEAL REFLUX DISEASE
     Route: 065
  13. VITAMINS (UNSPECIFIED) [Concomitant]
     Route: 065
  14. FOSAMAX [Suspect]
     Indication: OSTEOPOROSIS
     Route: 048
     Dates: start: 19970609, end: 20000502
  15. ALBUTEROL SULFATE AND IPRATROPIUM BROMIDE [Concomitant]
     Route: 065
  16. VITAMIN D (UNSPECIFIED) [Concomitant]
     Route: 065
     Dates: start: 20070101, end: 20080101
  17. ASPIRIN [Concomitant]
     Route: 065
  18. ALENDRONATE SODIUM AND CHOLECALCIFEROL [Suspect]
     Indication: OSTEOPOROSIS
     Route: 048
     Dates: start: 20061101, end: 20071019
  19. DOCUSATE SODIUM [Concomitant]
     Route: 065

REACTIONS (10)
  - LOW TURNOVER OSTEOPATHY [None]
  - CHRONIC OBSTRUCTIVE PULMONARY DISEASE [None]
  - STRESS FRACTURE [None]
  - OSTEOPENIA [None]
  - MUSCULOSKELETAL PAIN [None]
  - TOOTH DISORDER [None]
  - BONE DISORDER [None]
  - INAPPROPRIATE SCHEDULE OF DRUG ADMINISTRATION [None]
  - FALL [None]
  - FEMUR FRACTURE [None]
